FAERS Safety Report 17464707 (Version 1)
Quarter: 2020Q1

REPORT INFORMATION
  Report Type: Not Available
  Country: US (occurrence: US)
  Receive Date: 20200226
  Receipt Date: 20200226
  Transmission Date: 20200409
  Serious: Yes (Other)
  Sender: FDA-Public Use
  Company Number: US-NEUROCRINE BIOSCIENCES INC.-2020NBI00550

PATIENT
  Age: 70 Year
  Sex: Female

DRUGS (2)
  1. INGREZZA [Suspect]
     Active Substance: VALBENAZINE
     Indication: TARDIVE DYSKINESIA
     Route: 048
     Dates: start: 20191003
  2. INGREZZA [Suspect]
     Active Substance: VALBENAZINE
     Route: 048

REACTIONS (3)
  - Gait disturbance [Unknown]
  - Pain in extremity [Unknown]
  - Cardiac pacemaker insertion [Unknown]

NARRATIVE: CASE EVENT DATE: 201910
